FAERS Safety Report 9329733 (Version 1)
Quarter: 2013Q2

REPORT INFORMATION
  Report Type: Spontaneous
  Country: US (occurrence: US)
  Receive Date: 20130604
  Receipt Date: 20130604
  Transmission Date: 20140414
  Serious: No
  Sender: FDA-Public Use
  Company Number: US-SANOFI-AVENTIS-2013SA035145

PATIENT
  Age: 57 Year
  Sex: Female

DRUGS (2)
  1. LANTUS [Suspect]
     Dosage: 60 UNITS IN THE MORNING DOSE:60 UNIT(S)
     Route: 051
     Dates: start: 200311
  2. ALL OTHER THERAPEUTIC PRODUCTS [Concomitant]

REACTIONS (10)
  - Increased appetite [Unknown]
  - Insomnia [Unknown]
  - Rash [Unknown]
  - Musculoskeletal pain [Unknown]
  - Amnesia [Unknown]
  - Weight increased [Unknown]
  - Condition aggravated [Unknown]
  - Inappropriate schedule of drug administration [Unknown]
  - Oedema peripheral [Unknown]
  - Injection site swelling [Unknown]
